FAERS Safety Report 20719360 (Version 1)
Quarter: 2022Q2

REPORT INFORMATION
  Report Type: Spontaneous
  Country: US (occurrence: None)
  Receive Date: 20220415
  Receipt Date: 20220415
  Transmission Date: 20220720
  Serious: Yes (Life-Threatening, Hospitalization, Other)
  Sender: FDA-Public Use
  Company Number: None

PATIENT
  Age: 67 Year
  Sex: Male

DRUGS (1)
  1. BEBTELOVIMAB [Suspect]
     Active Substance: BEBTELOVIMAB
     Indication: COVID-19
     Dosage: OTHER FREQUENCY : ONCE;?
     Route: 042
     Dates: start: 20220414, end: 20220414

REACTIONS (6)
  - Infusion related reaction [None]
  - Sneezing [None]
  - Cough [None]
  - Pulse absent [None]
  - Unresponsive to stimuli [None]
  - Depressed level of consciousness [None]

NARRATIVE: CASE EVENT DATE: 20220414
